FAERS Safety Report 4327463-4 (Version None)
Quarter: 2004Q1

REPORT INFORMATION
  Report Type: 
  Country: None (occurrence: None)
  Receive Date: 20040330
  Receipt Date: 20040330
  Transmission Date: 20041129
  Serious: Yes (Other)
  Sender: FDA-Public Use
  Company Number: None

PATIENT
  Sex: Male

DRUGS (6)
  1. BUSPIRONE 10 MG PO TID [Suspect]
     Indication: ANXIETY DISORDER
     Dosage: 10 MG TID PO
     Route: 048
     Dates: start: 20040310, end: 20040321
  2. BUSPIRONE 10 MG PO TID [Suspect]
     Indication: BRUXISM
     Dosage: 10 MG TID PO
     Route: 048
     Dates: start: 20040310, end: 20040321
  3. RABEPRAZOLE SODIUM [Concomitant]
  4. DOCUSATE SODIUM [Concomitant]
  5. HYDROCORTISONE CREAM [Concomitant]
  6. WARFARIN SODIUM [Concomitant]

REACTIONS (3)
  - AGITATION [None]
  - INSOMNIA [None]
  - IRRITABILITY [None]
